FAERS Safety Report 12712316 (Version 2)
Quarter: 2016Q4

REPORT INFORMATION
  Report Type: Report from Study
  Country: US (occurrence: US)
  Receive Date: 20160902
  Receipt Date: 20161118
  Transmission Date: 20170207
  Serious: Yes (Other)
  Sender: FDA-Public Use
  Company Number: US-GUERBET LLC-1057010

PATIENT
  Age: 43 Year
  Sex: Female

DRUGS (4)
  1. EOVIST [Concomitant]
     Active Substance: GADOXETATE DISODIUM
     Dates: start: 20151218, end: 20151218
  2. OPTIMARK [Suspect]
     Active Substance: GADOVERSETAMIDE
     Indication: NUCLEAR MAGNETIC RESONANCE IMAGING
     Dates: start: 20151125, end: 20151125
  3. GADAVIST [Concomitant]
     Active Substance: GADOBUTROL
     Dates: start: 20151223, end: 20151223
  4. GADAVIST [Concomitant]
     Active Substance: GADOBUTROL
     Dates: start: 20160125, end: 20160125

REACTIONS (10)
  - Paraesthesia [Not Recovered/Not Resolved]
  - Memory impairment [Not Recovered/Not Resolved]
  - Medication residue present [Not Recovered/Not Resolved]
  - Loss of bladder sensation [Not Recovered/Not Resolved]
  - Muscle fatigue [Not Recovered/Not Resolved]
  - Thermohypoaesthesia [Not Recovered/Not Resolved]
  - Skin disorder [Not Recovered/Not Resolved]
  - Skin mass [Not Recovered/Not Resolved]
  - Pain of skin [Not Recovered/Not Resolved]
  - Skin swelling [Not Recovered/Not Resolved]

NARRATIVE: CASE EVENT DATE: 20160125
